FAERS Safety Report 19224551 (Version 8)
Quarter: 2021Q3

REPORT INFORMATION
  Report Type: Report from Study
  Country: TR (occurrence: TR)
  Receive Date: 20210506
  Receipt Date: 20210705
  Transmission Date: 20211014
  Serious: Yes (Death, Hospitalization)
  Sender: FDA-Public Use
  Company Number: TR-ROCHE-2812956

PATIENT
  Age: 70 Year
  Sex: Female
  Weight: 66.6 kg

DRUGS (36)
  1. ATEZOLIZUMAB. [Suspect]
     Active Substance: ATEZOLIZUMAB
     Indication: NON-SMALL CELL LUNG CANCER
     Dosage: START DATE OF MOST RECENT DOSE (1200 MG) OF STUDY DRUG PRIOR TO AE/SAE WAS ON 07/APR/2021.
     Route: 041
     Dates: start: 20210407
  2. CORASPIN [Concomitant]
     Active Substance: ASPIRIN
     Indication: BLOOD CHOLESTEROL INCREASED
     Route: 048
     Dates: start: 2009
  3. DORMICUM [Concomitant]
     Route: 042
     Dates: start: 20210428, end: 20210502
  4. VITAMIN C [Concomitant]
     Active Substance: ASCORBIC ACID
     Route: 042
     Dates: start: 20210415, end: 20210415
  5. CERNEVIT [Concomitant]
     Active Substance: VITAMINS
     Route: 042
     Dates: start: 20210424, end: 20210424
  6. DUPHALAC [Concomitant]
     Active Substance: LACTULOSE
     Indication: PROPHYLAXIS
     Route: 048
     Dates: start: 20210416, end: 20210417
  7. BELOC (TURKEY) [Concomitant]
     Indication: PROPHYLAXIS
     Dosage: 1 AMPULE
     Route: 042
     Dates: start: 20210427, end: 20210427
  8. CELLCEPT [Concomitant]
     Active Substance: MYCOPHENOLATE MOFETIL\MYCOPHENOLATE MOFETIL HYDROCHLORIDE
     Indication: PROPHYLAXIS
     Route: 048
     Dates: start: 20210430, end: 20210430
  9. SARILEN (TURKEY) [Concomitant]
     Indication: TENSION
     Route: 048
     Dates: start: 2009
  10. KORDEXA [Concomitant]
     Active Substance: DEXAMETHASONE
     Route: 048
     Dates: start: 20210310, end: 20210323
  11. CLEXANE [Concomitant]
     Active Substance: ENOXAPARIN SODIUM
     Route: 058
     Dates: start: 20210415, end: 20210422
  12. DORMICUM [Concomitant]
     Indication: PROPHYLAXIS
     Route: 042
     Dates: start: 20210416, end: 20210416
  13. CERNEVIT [Concomitant]
     Active Substance: VITAMINS
     Route: 042
     Dates: start: 20210428, end: 20210428
  14. XANAX [Concomitant]
     Active Substance: ALPRAZOLAM
     Indication: PROPHYLAXIS
     Route: 048
     Dates: start: 20210417, end: 20210417
  15. NEXIUM [Concomitant]
     Active Substance: ESOMEPRAZOLE MAGNESIUM
     Route: 048
     Dates: start: 202103
  16. GERALGINE K [Concomitant]
     Active Substance: ACETAMINOPHEN\CAFFEINE\CODEINE PHOSPHATE
     Route: 048
     Dates: start: 202103
  17. CERNEVIT [Concomitant]
     Active Substance: VITAMINS
     Route: 042
     Dates: start: 20210415, end: 20210415
  18. ESMERON [Concomitant]
     Active Substance: ROCURONIUM BROMIDE
     Route: 042
     Dates: start: 20210428, end: 20210502
  19. METPAMID [Concomitant]
     Active Substance: METOCLOPRAMIDE
     Route: 048
     Dates: start: 202103
  20. LASIX [Concomitant]
     Active Substance: FUROSEMIDE
     Indication: PROPHYLAXIS
     Route: 042
     Dates: start: 20210414, end: 20210414
  21. LASIX [Concomitant]
     Active Substance: FUROSEMIDE
     Route: 042
     Dates: start: 20210415, end: 20210416
  22. CLEXANE [Concomitant]
     Active Substance: ENOXAPARIN SODIUM
     Indication: PROPHYLAXIS
     Route: 058
     Dates: start: 20210414, end: 20210414
  23. ESMERON [Concomitant]
     Active Substance: ROCURONIUM BROMIDE
     Indication: PROPHYLAXIS
     Route: 042
     Dates: start: 20210418, end: 20210425
  24. MANNITOL. [Concomitant]
     Active Substance: MANNITOL
     Indication: PROPHYLAXIS
     Route: 042
     Dates: start: 20210427, end: 20210427
  25. TIRAGOLUMAB. [Suspect]
     Active Substance: TIRAGOLUMAB
     Indication: NON-SMALL CELL LUNG CANCER
     Dosage: START DATE OF MOST RECENT DOSE OF STUDY DRUG PRIOR TO AE/SAE WAS ON 07/APRL/2021? ON DAY 1 OF EACH 2
     Route: 042
     Dates: start: 20210407
  26. LERCADIP [Concomitant]
     Active Substance: LERCANIDIPINE HYDROCHLORIDE
     Indication: TENSION
     Route: 048
     Dates: start: 2009
  27. DORMICUM [Concomitant]
     Route: 042
     Dates: start: 20210414, end: 20210414
  28. ANEXATE [Concomitant]
     Active Substance: FLUMAZENIL
     Indication: PROPHYLAXIS
     Dosage: 1 AMPULE
     Route: 042
     Dates: start: 20210426, end: 20210426
  29. CLEXANE [Concomitant]
     Active Substance: ENOXAPARIN SODIUM
     Route: 058
     Dates: start: 20210423, end: 20210502
  30. LOSEC [Concomitant]
     Active Substance: OMEPRAZOLE
     Indication: PROPHYLAXIS
     Route: 042
     Dates: start: 20210414, end: 20210502
  31. DORMICUM [Concomitant]
     Route: 042
     Dates: start: 20210418, end: 20210425
  32. LASIX [Concomitant]
     Active Substance: FUROSEMIDE
     Route: 042
     Dates: start: 20210416, end: 20210417
  33. CORASPIN [Concomitant]
     Active Substance: ASPIRIN
     Indication: PROPHYLAXIS
     Route: 048
     Dates: start: 20210414, end: 20210417
  34. VENTOLIN [Concomitant]
     Active Substance: ALBUTEROL SULFATE
     Indication: DYSPNOEA
     Route: 055
     Dates: start: 2018
  35. RESPIRO [Concomitant]
     Indication: DYSPNOEA
     Route: 055
     Dates: start: 2018
  36. COLASTIN?L [Concomitant]
     Indication: BLOOD CHOLESTEROL INCREASED
     Route: 048
     Dates: start: 2009

REACTIONS (4)
  - Pneumonia [Not Recovered/Not Resolved]
  - Pneumonitis [Fatal]
  - Myositis [Not Recovered/Not Resolved]
  - Renal failure [Not Recovered/Not Resolved]

NARRATIVE: CASE EVENT DATE: 20210414
